FAERS Safety Report 4981591-9 (Version None)
Quarter: 2006Q2

REPORT INFORMATION
  Report Type: 
  Country: None (occurrence: None)
  Receive Date: 20060425
  Receipt Date: 20060421
  Transmission Date: 20061013
  Serious: Yes (Hospitalization)
  Sender: FDA-Public Use
  Company Number: AU-BRISTOL-MYERS SQUIBB COMPANY-13353065

PATIENT
  Age: 76 Year
  Sex: Male

DRUGS (2)
  1. IRBESARTAN AND HYDROCHLOROTHIAZIDE [Suspect]
     Indication: RENAL DISORDER
     Dosage: 300 MG/12.5 MG
     Route: 048
  2. LERCANIDIPINE [Suspect]
     Indication: BLOOD PRESSURE MANAGEMENT

REACTIONS (2)
  - BLOOD POTASSIUM INCREASED [None]
  - LOWER RESPIRATORY TRACT INFECTION [None]
